FAERS Safety Report 7358154-3 (Version None)
Quarter: 2011Q1

REPORT INFORMATION
  Report Type: 
  Country: None (occurrence: None)
  Receive Date: 20110317
  Receipt Date: 20110309
  Transmission Date: 20110831
  Serious: Yes (Hospitalization)
  Sender: FDA-Public Use
  Company Number: US-ELI_LILLY_AND_COMPANY-US201101007432

PATIENT
  Sex: Female
  Weight: 151.02 kg

DRUGS (10)
  1. MELATONIN [Concomitant]
  2. TRAMADOL HCL [Concomitant]
  3. EFFIENT [Suspect]
     Dosage: 10 MG, DAILY (1/D)
     Route: 048
     Dates: start: 20110105, end: 20110125
  4. CRESTOR [Concomitant]
  5. EFFIENT [Suspect]
     Dosage: 10 MG, DAILY (1/D)
     Route: 048
     Dates: start: 20110127
  6. LEVOXYL [Concomitant]
  7. INSULIN [Concomitant]
  8. LISINOPRIL [Concomitant]
  9. ASPIRIN [Concomitant]
  10. TIZANIDINE [Concomitant]

REACTIONS (1)
  - CHOLELITHIASIS [None]
